FAERS Safety Report 8540889-8 (Version None)
Quarter: 2012Q3

REPORT INFORMATION
  Report Type: 
  Country: None (occurrence: None)
  Receive Date: 20120726
  Receipt Date: 20120716
  Transmission Date: 20120928
  Serious: Yes (Hospitalization)
  Sender: FDA-Public Use
  Company Number: GB-PFIZER INC-2012084653

PATIENT
  Age: 65 Year
  Sex: Female

DRUGS (9)
  1. OMEPRAZOLE [Concomitant]
     Dosage: UNK
  2. DICLOFENAC [Suspect]
     Dosage: 50 MG, 3X/DAY
     Route: 048
     Dates: end: 20120308
  3. PREGABALIN [Concomitant]
     Dosage: UNK
  4. SALBUTAMOL [Concomitant]
     Dosage: UNK
  5. MORPHINE SULFATE [Suspect]
     Indication: PAIN
     Dosage: 5 MG, 2X/DAY
     Route: 048
     Dates: start: 20120304, end: 20120308
  6. CITALOPRAM [Concomitant]
     Dosage: UNK
  7. LOSARTAN POTASSIUM [Suspect]
     Dosage: UNK
     Route: 048
     Dates: end: 20120308
  8. METOLAZONE [Suspect]
     Dosage: UNK
     Route: 048
     Dates: end: 20120308
  9. PARACETAMOL [Concomitant]
     Dosage: UNK

REACTIONS (5)
  - RENAL FAILURE ACUTE [None]
  - DEHYDRATION [None]
  - SOMNOLENCE [None]
  - TOXICITY TO VARIOUS AGENTS [None]
  - CONFUSIONAL STATE [None]
